FAERS Safety Report 4541930-X (Version None)
Quarter: 2004Q4

REPORT INFORMATION
  Report Type: 
  Country: None (occurrence: None)
  Receive Date: 20041227
  Receipt Date: 20041217
  Transmission Date: 20050328
  Serious: Yes (Death)
  Sender: FDA-Public Use
  Company Number: 211210

PATIENT
  Age: 77 Year
  Sex: Male

DRUGS (6)
  1. MABTHERA (RITUXIMAB) CONC FOR SOLUTION FOR INFUSION [Suspect]
     Indication: NON-HODGKIN'S LYMPHOMA
     Dosage: SEE IMAGE
     Route: 042
     Dates: start: 20020101
  2. MABTHERA (RITUXIMAB) CONC FOR SOLUTION FOR INFUSION [Suspect]
     Indication: NON-HODGKIN'S LYMPHOMA
     Dosage: SEE IMAGE
     Route: 042
     Dates: start: 20030101
  3. PIRARUBICIN (PIRARUBICIN) [Concomitant]
  4. CYCLOPHOSPHAMIDE [Concomitant]
  5. VINCRISTINE [Concomitant]
  6. PREDNISOLONE [Concomitant]

REACTIONS (4)
  - NON-HODGKIN'S LYMPHOMA RECURRENT [None]
  - PNEUMOCYSTIS CARINII PNEUMONIA [None]
  - RESPIRATORY FAILURE [None]
  - THERAPY NON-RESPONDER [None]
